FAERS Safety Report 7229203-8 (Version None)
Quarter: 2011Q1

REPORT INFORMATION
  Report Type: 
  Country: None (occurrence: None)
  Receive Date: 20110117
  Receipt Date: 20101223
  Transmission Date: 20110831
  Serious: Yes (Hospitalization)
  Sender: FDA-Public Use
  Company Number: FI-JNJFOC-20101205073

PATIENT
  Age: 35 Year
  Sex: Female

DRUGS (8)
  1. REMICADE [Suspect]
     Route: 042
  2. REMICADE [Suspect]
     Route: 042
  3. REMICADE [Suspect]
     Route: 042
  4. MYCOSTATIN [Concomitant]
  5. FOLIC ACID [Concomitant]
  6. METHOTREXATE [Concomitant]
  7. CORTISONE [Concomitant]
     Indication: PROPHYLAXIS
  8. REMICADE [Suspect]
     Indication: CROHN'S DISEASE
     Route: 042

REACTIONS (14)
  - TACHYCARDIA [None]
  - OROPHARYNGEAL SWELLING [None]
  - PAIN IN EXTREMITY [None]
  - DEPRESSED LEVEL OF CONSCIOUSNESS [None]
  - SENSATION OF FOREIGN BODY [None]
  - SKIN REACTION [None]
  - OEDEMA [None]
  - NAUSEA [None]
  - SWOLLEN TONGUE [None]
  - ILEOSTOMY [None]
  - SERUM SICKNESS-LIKE REACTION [None]
  - TYPE IV HYPERSENSITIVITY REACTION [None]
  - DYSPNOEA [None]
  - ABSCESS [None]
